FAERS Safety Report 18220518 (Version 1)
Quarter: 2020Q3

REPORT INFORMATION
  Report Type: Spontaneous
  Country: FR (occurrence: FR)
  Receive Date: 20200902
  Receipt Date: 20200902
  Transmission Date: 20201103
  Serious: Yes (Hospitalization, Other)
  Sender: FDA-Public Use
  Company Number: FR-SUN PHARMACEUTICAL INDUSTRIES LTD-2020RR-260006

PATIENT
  Age: 28 Year
  Sex: Male

DRUGS (4)
  1. PARACETAMOL [Suspect]
     Active Substance: ACETAMINOPHEN
     Indication: PRODUCT USED FOR UNKNOWN INDICATION
     Dosage: ()
     Route: 065
     Dates: start: 20200801, end: 20200805
  2. AZITHROMYCINE [Suspect]
     Active Substance: AZITHROMYCIN
     Indication: LUNG DISORDER
     Dosage: ()
     Route: 065
     Dates: start: 20200801, end: 20200805
  3. CEFOTAXIME BASE [Suspect]
     Active Substance: CEFOTAXIME SODIUM
     Indication: LUNG DISORDER
     Dosage: ()
     Route: 065
     Dates: start: 20200801, end: 20200805
  4. THIAMAZOLE [Suspect]
     Active Substance: METHIMAZOLE
     Indication: HYPERTHYROIDISM
     Dosage: 40 MILLIGRAM, DAILY
     Route: 065
     Dates: start: 20200804, end: 20200805

REACTIONS (1)
  - Agranulocytosis [Not Recovered/Not Resolved]

NARRATIVE: CASE EVENT DATE: 20200805
